FAERS Safety Report 4533240-1 (Version None)
Quarter: 2005Q1

REPORT INFORMATION
  Report Type: 
  Country: None (occurrence: None)
  Receive Date: 20041206
  Receipt Date: 20040826
  Transmission Date: 20050727
  Serious: No
  Sender: FDA-Public Use
  Company Number: USA040876109

PATIENT
  Sex: Female

DRUGS (10)
  1. CYMBALTA [Suspect]
     Indication: FIBROMYALGIA
     Dosage: 30 MG DAY
     Dates: start: 20040819, end: 20040820
  2. CELEXA [Concomitant]
  3. ULTRACET [Concomitant]
  4. FEMHRT [Concomitant]
  5. FLONASE [Concomitant]
  6. COMBIVENT [Concomitant]
  7. AEROBID [Concomitant]
  8. AMBIEN [Concomitant]
  9. KLONOPIN [Concomitant]
  10. CLARITIN [Concomitant]

REACTIONS (5)
  - CHEST DISCOMFORT [None]
  - CHILLS [None]
  - DYSGEUSIA [None]
  - DYSPNOEA [None]
  - HEADACHE [None]
